FAERS Safety Report 25963193 (Version 1)
Quarter: 2025Q4

REPORT INFORMATION
  Report Type: Spontaneous
  Country: US (occurrence: None)
  Receive Date: 20251024
  Receipt Date: 20251024
  Transmission Date: 20260118
  Serious: Yes (Death)
  Sender: FDA-CTU
  Company Number: None

PATIENT
  Sex: Female

DRUGS (2)
  1. NIVESTYM [Suspect]
     Active Substance: FILGRASTIM-AAFI
     Indication: Neoplasm malignant
     Dosage: OTHER FREQUENCY : INJECT 1 SYRINGE U;?STRENGTH: 480MCG/.8M
     Route: 058
  2. ZARXIO [Suspect]
     Active Substance: FILGRASTIM-SNDZ
     Indication: Neoplasm malignant
     Dosage: FREQUENCY : AS NEEDED;?STRENGTH: 480MCG/0.8
     Route: 058

REACTIONS (1)
  - Death [None]
